FAERS Safety Report 24743881 (Version 1)
Quarter: 2024Q4

REPORT INFORMATION
  Report Type: Spontaneous
  Country: US (occurrence: US)
  Receive Date: 20241217
  Receipt Date: 20241217
  Transmission Date: 20250115
  Serious: No
  Sender: PFIZER
  Company Number: US-PFIZER INC-202400323966

PATIENT
  Age: 8 Month
  Sex: Female

DRUGS (1)
  1. EUCRISA [Suspect]
     Active Substance: CRISABOROLE
     Dosage: 1 APPLICATION EXTERNALLY TWICE A DAY 30 DAYS

REACTIONS (1)
  - Acute sinusitis [Unknown]
